FAERS Safety Report 7418940-8 (Version None)
Quarter: 2011Q2

REPORT INFORMATION
  Report Type: 
  Country: None (occurrence: None)
  Receive Date: 20110406
  Receipt Date: 20110323
  Transmission Date: 20111010
  Serious: Yes (Death)
  Sender: FDA-Public Use
  Company Number: FR-1170923

PATIENT
  Age: 1 Month
  Sex: Female

DRUGS (5)
  1. CALCIUM FOLINATE [Concomitant]
  2. ATROPINE SULFATE [Suspect]
     Dosage: 1 GTT OU OPHTHALMIC
     Route: 047
     Dates: start: 20090805, end: 20090805
  3. FERROSTRANE [Concomitant]
  4. UVESTEROL [Concomitant]
  5. VITAMINE K1 [Concomitant]

REACTIONS (21)
  - PETECHIAE [None]
  - INTESTINAL ISCHAEMIA [None]
  - BRADYCARDIA [None]
  - METABOLIC ACIDOSIS [None]
  - BLOOD LACTIC ACID INCREASED [None]
  - VOMITING [None]
  - MULTI-ORGAN FAILURE [None]
  - MALAISE [None]
  - COLITIS ULCERATIVE [None]
  - APNOEA [None]
  - NECROTISING COLITIS [None]
  - CYTOLYTIC HEPATITIS [None]
  - DISSEMINATED INTRAVASCULAR COAGULATION [None]
  - OXYGEN SATURATION DECREASED [None]
  - BODY TEMPERATURE INCREASED [None]
  - MYDRIASIS [None]
  - INFECTION [None]
  - SUBILEUS [None]
  - ABDOMINAL DISTENSION [None]
  - HAEMATEMESIS [None]
  - SHOCK [None]
